FAERS Safety Report 13162569 (Version 1)
Quarter: 2017Q1

REPORT INFORMATION
  Report Type: Spontaneous
  Country: US (occurrence: US)
  Receive Date: 20170128
  Receipt Date: 20170128
  Transmission Date: 20170428
  Serious: No
  Sender: FDA-Public Use
  Company Number: None

PATIENT
  Age: 3 Month
  Sex: Male
  Weight: 5.85 kg

DRUGS (1)
  1. AMOXICILLIN FOR ORAL SUSPENSION, [Suspect]
     Active Substance: AMOXICILLIN
     Indication: EAR INFECTION
     Dosage: ?          QUANTITY:12 DOSES;?
     Route: 048
     Dates: start: 20170121, end: 20170126

REACTIONS (2)
  - Drug dispensing error [None]
  - Expired product administered [None]

NARRATIVE: CASE EVENT DATE: 20170126
